FAERS Safety Report 4372876-8 (Version None)
Quarter: 2004Q2

REPORT INFORMATION
  Report Type: 
  Country: None (occurrence: None)
  Receive Date: 20040603
  Receipt Date: 20021003
  Transmission Date: 20050107
  Serious: Yes (Hospitalization)
  Sender: FDA-Public Use
  Company Number: F01200200406

PATIENT
  Age: 65 Year
  Sex: Male

DRUGS (4)
  1. XATRAL- (ALFUZOSIN) - TABLET PR - 10 MG [Suspect]
     Indication: BENIGN PROSTATIC HYPERPLASIA
     Dosage: 10 MG OD; ORAL
     Route: 048
     Dates: start: 20020410
  2. ADALAT [Concomitant]
  3. NOVASEN (ACETYLSALICYLIC ACID) [Concomitant]
  4. METOPROLOL TARTRATE [Concomitant]

REACTIONS (2)
  - ACUTE CORONARY SYNDROME [None]
  - ANGINA PECTORIS [None]
